FAERS Safety Report 17946256 (Version 1)
Quarter: 2020Q2

REPORT INFORMATION
  Report Type: Spontaneous
  Country: US (occurrence: US)
  Receive Date: 20200625
  Receipt Date: 20200625
  Transmission Date: 20200714
  Serious: No
  Sender: FDA-Public Use
  Company Number: US-VIRTUS PHARMACEUTICALS, LLC-2019VTS00034

PATIENT
  Sex: Female

DRUGS (2)
  1. PROGESTERONE. [Suspect]
     Active Substance: PROGESTERONE
     Route: 048
  2. UNPECIFIED GEL PRODUCT [Suspect]
     Active Substance: UNSPECIFIED INGREDIENT
     Dosage: 0.56 UNK
     Route: 061

REACTIONS (1)
  - Pruritus [Recovered/Resolved]
